FAERS Safety Report 7635786-6 (Version None)
Quarter: 2011Q3

REPORT INFORMATION
  Report Type: 
  Country: None (occurrence: None)
  Receive Date: 20110719
  Receipt Date: 20110704
  Transmission Date: 20111222
  Serious: Yes (Disabling)
  Sender: FDA-Public Use
  Company Number: TCI2011A03507

PATIENT
  Age: 65 Year
  Sex: Male

DRUGS (4)
  1. ACTOS [Suspect]
     Indication: TYPE 2 DIABETES MELLITUS
     Dosage: 15 MG (15 MG, 1 IN 1 D)
     Route: 048
     Dates: start: 20030210, end: 20030227
  2. BAYASPIRIN (ACETYSSALICYLIC ACID0 [Concomitant]
  3. AMARYL [Concomitant]
  4. ACARBOSE [Concomitant]

REACTIONS (4)
  - BLADDER CANCER [None]
  - GLUCOSE URINE PRESENT [None]
  - PROTEIN URINE PRESENT [None]
  - HAEMATURIA [None]
